FAERS Safety Report 20389558 (Version 1)
Quarter: 2022Q1

REPORT INFORMATION
  Report Type: Spontaneous
  Country: None (occurrence: US)
  Receive Date: 20220128
  Receipt Date: 20220128
  Transmission Date: 20220423
  Serious: No
  Sender: FDA-Public Use
  Company Number: US-SERB S.A.S.-2124382

PATIENT
  Age: 42 Year
  Sex: Male

DRUGS (3)
  1. CYANOKIT [Suspect]
     Active Substance: HYDROXOCOBALAMIN
     Indication: Blood cyanide increased
     Route: 042
  2. ADENOSINE [Concomitant]
     Active Substance: ADENOSINE
     Route: 041
  3. LORAZEPAM [Concomitant]
     Active Substance: LORAZEPAM
     Route: 041

REACTIONS (1)
  - Laboratory test interference [Recovered/Resolved]
